FAERS Safety Report 13049275 (Version 1)
Quarter: 2016Q4

REPORT INFORMATION
  Report Type: Spontaneous
  Country: FR (occurrence: FR)
  Receive Date: 20161221
  Receipt Date: 20161221
  Transmission Date: 20170207
  Serious: Yes (Death)
  Sender: FDA-Public Use
  Company Number: FR-ROCHE-1868996

PATIENT
  Age: 75 Year
  Sex: Male

DRUGS (9)
  1. RIVOTRIL [Suspect]
     Active Substance: CLONAZEPAM
     Indication: PRODUCT USED FOR UNKNOWN INDICATION
     Dosage: 1MG/1ML
     Route: 041
     Dates: start: 20161013, end: 20161018
  2. TEGRETOL [Interacting]
     Active Substance: CARBAMAZEPINE
     Indication: PRODUCT USED FOR UNKNOWN INDICATION
     Route: 048
     Dates: start: 20161013, end: 20161018
  3. URBANYL [Interacting]
     Active Substance: CLOBAZAM
     Indication: PRODUCT USED FOR UNKNOWN INDICATION
     Route: 048
     Dates: start: 20161017, end: 20161018
  4. KEPPRA [Interacting]
     Active Substance: LEVETIRACETAM
     Route: 040
     Dates: start: 20161017
  5. TEGRETOL [Interacting]
     Active Substance: CARBAMAZEPINE
     Route: 048
     Dates: start: 20161017
  6. PRODILANTIN [Interacting]
     Active Substance: FOSPHENYTOIN SODIUM
     Indication: PRODUCT USED FOR UNKNOWN INDICATION
     Dosage: 75MG/ML
     Route: 042
     Dates: start: 20161013, end: 20161016
  7. HYPNOVEL (INJ) [Interacting]
     Active Substance: MIDAZOLAM\MIDAZOLAM HYDROCHLORIDE
     Indication: PRODUCT USED FOR UNKNOWN INDICATION
     Dosage: 50MG/10ML
     Route: 041
     Dates: start: 20161017, end: 20161025
  8. RIVOTRIL [Interacting]
     Active Substance: CLONAZEPAM
     Dosage: 0.1 MG/H WITH ELECTRIC SYRINGE.
     Route: 041
     Dates: start: 20161017
  9. KEPPRA [Interacting]
     Active Substance: LEVETIRACETAM
     Indication: PRODUCT USED FOR UNKNOWN INDICATION
     Dosage: 100MG/ML
     Route: 040
     Dates: start: 20161013

REACTIONS (3)
  - Drug interaction [Fatal]
  - Drug ineffective [Fatal]
  - Status epilepticus [Fatal]
